FAERS Safety Report 25751183 (Version 1)
Quarter: 2025Q3

REPORT INFORMATION
  Report Type: Spontaneous
  Country: GB (occurrence: None)
  Receive Date: 20250831
  Receipt Date: 20250831
  Transmission Date: 20251021
  Serious: Yes (Disabling, Other)
  Sender: FDA-CTU
  Company Number: None

PATIENT
  Age: 47 Year
  Sex: Male
  Weight: 88.2 kg

DRUGS (1)
  1. EFFEXOR [Suspect]
     Active Substance: VENLAFAXINE HYDROCHLORIDE
     Indication: Depression
     Dosage: FREQUENCY : TWICE A DAY;?
     Route: 048
     Dates: start: 20240401

REACTIONS (10)
  - Emotional poverty [None]
  - Personality change [None]
  - Disinhibition [None]
  - Narcissistic personality disorder [None]
  - Alcoholic [None]
  - Economic problem [None]
  - Social avoidant behaviour [None]
  - Agitation [None]
  - Personal relationship issue [None]
  - Personality disorder [None]

NARRATIVE: CASE EVENT DATE: 20250601
